FAERS Safety Report 16136478 (Version 2)
Quarter: 2019Q2

REPORT INFORMATION
  Report Type: Report from Study
  Country: FR (occurrence: FR)
  Receive Date: 20190329
  Receipt Date: 20190430
  Transmission Date: 20190711
  Serious: Yes (Hospitalization, Other)
  Sender: FDA-Public Use
  Company Number: FR-B.I. PHARMACEUTICALS,INC./RIDGEFIELD-2019-BI-014523

PATIENT
  Age: 73 Year
  Sex: Female
  Weight: 68.3 kg

DRUGS (6)
  1. FOSAVANCE [Concomitant]
     Active Substance: ALENDRONATE SODIUM\CHOLECALCIFEROL
     Indication: ANAEMIA
     Route: 048
     Dates: start: 2016
  2. NINTEDANIB [Suspect]
     Active Substance: NINTEDANIB
     Indication: SOFT TISSUE SARCOMA
     Route: 048
     Dates: start: 20171213, end: 20180305
  3. NINTEDANIB [Suspect]
     Active Substance: NINTEDANIB
     Route: 048
     Dates: end: 20180322
  4. VITAMIN B12 [Concomitant]
     Active Substance: CYANOCOBALAMIN
     Indication: ANAEMIA
     Route: 048
     Dates: start: 2016
  5. IRON [Concomitant]
     Active Substance: IRON
     Indication: ANAEMIA
     Route: 048
     Dates: start: 2016
  6. FEOL TR PLUS [Concomitant]
     Indication: ANAEMIA
     Route: 048
     Dates: start: 2016

REACTIONS (1)
  - Anaemia [Recovered/Resolved]

NARRATIVE: CASE EVENT DATE: 20180306
